FAERS Safety Report 4606823-8 (Version None)
Quarter: 2005Q1

REPORT INFORMATION
  Report Type: 
  Country: None (occurrence: None)
  Receive Date: 20050309
  Receipt Date: 20050221
  Transmission Date: 20050727
  Serious: No
  Sender: FDA-Public Use
  Company Number: USA050187623

PATIENT
  Age: 31 Year
  Sex: Male
  Weight: 130 kg

DRUGS (11)
  1. STRATTERA [Suspect]
     Indication: ATTENTION DEFICIT/HYPERACTIVITY DISORDER
     Dosage: 80 MG DAY
     Dates: start: 20030101, end: 20050107
  2. ALBUTEROL [Concomitant]
  3. ABILIFY [Concomitant]
  4. PREVACID [Concomitant]
  5. ATIVAN [Concomitant]
  6. MINOXIDIL [Concomitant]
  7. CARDIZEM LA (DILTIAZEM) [Concomitant]
  8. CLONADINE [Concomitant]
  9. ADDERALL 10 [Concomitant]
  10. ALPRAZOLAM [Concomitant]
  11. TIAGABINE [Concomitant]

REACTIONS (13)
  - AGGRESSION [None]
  - ANXIETY [None]
  - BONE DISORDER [None]
  - CHROMATURIA [None]
  - CONDITION AGGRAVATED [None]
  - COUGH [None]
  - FORMICATION [None]
  - INFLUENZA LIKE ILLNESS [None]
  - OEDEMA PERIPHERAL [None]
  - PAIN [None]
  - PANIC ATTACK [None]
  - RESTLESSNESS [None]
  - SPEECH DISORDER [None]
